FAERS Safety Report 6367213-3 (Version None)
Quarter: 2009Q3

REPORT INFORMATION
  Report Type: 
  Country: None (occurrence: None)
  Receive Date: 20090921
  Receipt Date: 20090915
  Transmission Date: 20100115
  Serious: Yes (Other)
  Sender: FDA-Public Use
  Company Number: US-BAYER-200933037NA

PATIENT
  Age: 41 Year
  Sex: Female
  Weight: 79 kg

DRUGS (3)
  1. MIRENA [Suspect]
     Indication: CONTRACEPTION
     Dosage: CONTINUOUS
     Route: 015
     Dates: end: 20090906
  2. ZOLOFT [Concomitant]
  3. LORAZEPAM [Concomitant]

REACTIONS (2)
  - ABDOMINAL PAIN [None]
  - ECTOPIC PREGNANCY WITH INTRAUTERINE DEVICE [None]
